FAERS Safety Report 18562678 (Version 4)
Quarter: 2020Q4

REPORT INFORMATION
  Report Type: Spontaneous
  Country: US (occurrence: US)
  Receive Date: 20201201
  Receipt Date: 20201223
  Transmission Date: 20210114
  Serious: No
  Sender: FDA-Public Use
  Company Number: US-SA-2020SA340626

PATIENT

DRUGS (1)
  1. TOUJEO MAX [Suspect]
     Active Substance: INSULIN GLARGINE
     Dosage: 34 IU, QD
     Dates: start: 20201118

REACTIONS (3)
  - Hypoacusis [Unknown]
  - Blood glucose increased [Unknown]
  - Device operational issue [Unknown]

NARRATIVE: CASE EVENT DATE: 20201118
